FAERS Safety Report 23561245 (Version 1)
Quarter: 2024Q1

REPORT INFORMATION
  Report Type: Spontaneous
  Country: US (occurrence: None)
  Receive Date: 20240224
  Receipt Date: 20240224
  Transmission Date: 20240410
  Serious: No
  Sender: FDA-Public Use
  Company Number: 2024A043259

PATIENT
  Sex: Male

DRUGS (1)
  1. SYMBICORT [Suspect]
     Active Substance: BUDESONIDE\FORMOTEROL FUMARATE DIHYDRATE
     Indication: Bronchitis chronic
     Dosage: UNKNOWN UNKNOWN
     Route: 055

REACTIONS (5)
  - Dyspnoea [Unknown]
  - Upper respiratory tract infection [Unknown]
  - Illness [Unknown]
  - Wheezing [Unknown]
  - Product dose omission issue [Unknown]
